FAERS Safety Report 13216801 (Version 8)
Quarter: 2017Q4

REPORT INFORMATION
  Report Type: Report from Study
  Country: CA (occurrence: CA)
  Receive Date: 20170210
  Receipt Date: 20171210
  Transmission Date: 20180320
  Serious: Yes (Other)
  Sender: FDA-Public Use
  Company Number: CA-ROCHE-1870282

PATIENT
  Sex: Male
  Weight: 75 kg

DRUGS (13)
  1. ACTEMRA [Suspect]
     Active Substance: TOCILIZUMAB
     Route: 058
     Dates: start: 20170517
  2. FINASTERIDE. [Concomitant]
     Active Substance: FINASTERIDE
  3. ACTEMRA [Suspect]
     Active Substance: TOCILIZUMAB
     Route: 058
     Dates: start: 20170328
  4. ACTEMRA [Suspect]
     Active Substance: TOCILIZUMAB
     Route: 058
     Dates: start: 201707
  5. DEPO-MEDROL [Concomitant]
     Active Substance: METHYLPREDNISOLONE ACETATE
  6. LEFLUNOMIDE. [Concomitant]
     Active Substance: LEFLUNOMIDE
  7. ACTEMRA [Suspect]
     Active Substance: TOCILIZUMAB
     Route: 058
     Dates: start: 20170329
  8. ACTEMRA [Suspect]
     Active Substance: TOCILIZUMAB
     Route: 058
     Dates: start: 20170421
  9. ACTEMRA [Suspect]
     Active Substance: TOCILIZUMAB
     Route: 058
     Dates: start: 20170503
  10. TAMSULOSIN [Concomitant]
     Active Substance: TAMSULOSIN
  11. ACTEMRA [Suspect]
     Active Substance: TOCILIZUMAB
     Indication: RHEUMATOID ARTHRITIS
     Route: 058
     Dates: start: 20161130
  12. ACTEMRA [Suspect]
     Active Substance: TOCILIZUMAB
     Route: 058
     Dates: start: 2017
  13. TECTA [Concomitant]
     Active Substance: PANTOPRAZOLE MAGNESIUM

REACTIONS (13)
  - Arthralgia [Recovering/Resolving]
  - Cartilage injury [Unknown]
  - Swelling [Not Recovered/Not Resolved]
  - Musculoskeletal stiffness [Unknown]
  - Neutrophil count decreased [Unknown]
  - Abdominal pain upper [Recovered/Resolved]
  - Therapeutic response decreased [Unknown]
  - Headache [Not Recovered/Not Resolved]
  - Joint swelling [Unknown]
  - Abdominal discomfort [Recovered/Resolved]
  - Sleep disorder [Not Recovered/Not Resolved]
  - Weight increased [Unknown]
  - Liver function test abnormal [Unknown]
